FAERS Safety Report 17550736 (Version 1)
Quarter: 2020Q1

REPORT INFORMATION
  Report Type: Spontaneous
  Country: NL (occurrence: NL)
  Receive Date: 20200317
  Receipt Date: 20200317
  Transmission Date: 20200409
  Serious: Yes (Hospitalization, Other)
  Sender: FDA-Public Use
  Company Number: NL-GLAXOSMITHKLINE-NL2020043136

PATIENT
  Age: 10 Year
  Sex: Female

DRUGS (6)
  1. LOSEC [Concomitant]
     Active Substance: OMEPRAZOLE
     Indication: PRODUCT USED FOR UNKNOWN INDICATION
     Dosage: 40 MG, QD, 2DD20MG
     Route: 050
     Dates: start: 20090609
  2. LAMOTRIGINE. [Suspect]
     Active Substance: LAMOTRIGINE
     Indication: EPILEPSY
     Dosage: 100 MG, QD, FIRST USED 75MG {2005; FROM 14/7/09: 1DD100MG
     Route: 048
  3. RIVOTRIL [Interacting]
     Active Substance: CLONAZEPAM
     Indication: PRODUCT USED FOR UNKNOWN INDICATION
     Dosage: 1 DF, USE KNOWN, DROPS
     Route: 048
     Dates: start: 20090831
  4. CLARITHROMYCIN SANDOZ [Interacting]
     Active Substance: CLARITHROMYCIN
     Indication: PRODUCT USED FOR UNKNOWN INDICATION
     Dosage: 12 ML, QD, 2DD6ML
     Route: 048
     Dates: start: 20090908, end: 20090911
  5. COMBIVENT [Concomitant]
     Active Substance: ALBUTEROL SULFATE\IPRATROPIUM BROMIDE
     Indication: PRODUCT USED FOR UNKNOWN INDICATION
     Dosage: 1 DF, UNIT DOSE MIST SOLUTION VIAL, DOSAGE UNKNOWN
     Route: 050
     Dates: start: 20090615
  6. BACLOFEN. [Concomitant]
     Active Substance: BACLOFEN
     Indication: PRODUCT USED FOR UNKNOWN INDICATION
     Dosage: 1 DF, USE KNOWN, SUSPENSION
     Route: 050
     Dates: start: 20090609

REACTIONS (2)
  - Drug interaction [Unknown]
  - Epilepsy [Recovered/Resolved]

NARRATIVE: CASE EVENT DATE: 20090911
